FAERS Safety Report 5687048-4 (Version None)
Quarter: 2008Q1

REPORT INFORMATION
  Report Type: 
  Country: None (occurrence: None)
  Receive Date: 20080328
  Receipt Date: 20061227
  Transmission Date: 20080703
  Serious: No
  Sender: FDA-Public Use
  Company Number: US-BAYER-US-2006-038042

PATIENT
  Age: 31 Year
  Sex: Female
  Weight: 74 kg

DRUGS (1)
  1. MIRENA [Suspect]
     Indication: CONTRACEPTION
     Route: 015
     Dates: start: 20061107, end: 20061114

REACTIONS (2)
  - MENOMETRORRHAGIA [None]
  - PREGNANCY TEST FALSE POSITIVE [None]
